FAERS Safety Report 9189740 (Version 1)
Quarter: 2013Q1

REPORT INFORMATION
  Report Type: Spontaneous
  Country: US (occurrence: None)
  Receive Date: 20130322
  Receipt Date: 20130322
  Transmission Date: 20140127
  Serious: No
  Sender: FDA-Public Use
  Company Number: None

PATIENT
  Sex: Male
  Weight: 21.7 kg

DRUGS (3)
  1. DAPSONE [Suspect]
     Indication: ANTIFUNGAL PROPHYLAXIS
     Dosage: 50 MG DAILY PO
     Route: 048
     Dates: start: 20120921, end: 20121102
  2. EMLA CREAM [Concomitant]
  3. CYCLOSPORIN [Concomitant]

REACTIONS (2)
  - Rash [None]
  - Haemoglobin decreased [None]
